FAERS Safety Report 8069602-8 (Version None)
Quarter: 2011Q4

REPORT INFORMATION
  Report Type: 
  Country: None (occurrence: None)
  Receive Date: 20111221
  Receipt Date: 20110114
  Transmission Date: 20120403
  Serious: Yes (Hospitalization)
  Sender: FDA-Public Use
  Company Number: PHEH2009US17012

PATIENT
  Age: 78 Year
  Sex: Male

DRUGS (2)
  1. EXJADE [Suspect]
     Indication: SIDEROBLASTIC ANAEMIA
     Dosage: 1000 MG, ORAL, 1500 MG, ORAL, 1000 MG DAILY, ORAL
     Route: 048
     Dates: start: 20090903
  2. PROKIT [Concomitant]

REACTIONS (2)
  - GASTROINTESTINAL HAEMORRHAGE [None]
  - RECTAL HAEMORRHAGE [None]
